FAERS Safety Report 5132650-1 (Version None)
Quarter: 2006Q4

REPORT INFORMATION
  Report Type: 
  Country: None (occurrence: None)
  Receive Date: 20061017
  Receipt Date: 20060905
  Transmission Date: 20070319
  Serious: Yes (Other)
  Sender: FDA-Public Use
  Company Number: 2006RR-03755

PATIENT
  Age: 69 Year
  Sex: Male
  Weight: 59 kg

DRUGS (9)
  1. SIMVASTATIN [Suspect]
     Indication: BLOOD CHOLESTEROL INCREASED
     Dosage: 40 MG, QD, ORAL
     Route: 048
     Dates: start: 20051101
  2. EZETROL [Suspect]
     Indication: BLOOD CHOLESTEROL INCREASED
     Dosage: 10 MG, QD, ORAL
     Route: 048
     Dates: start: 20060206, end: 20060215
  3. WARFARIN SODIUM [Suspect]
     Dosage: SINGLE,
  4. AMOLDIPINE [Concomitant]
  5. CODEINE [Concomitant]
  6. FUROSEMIDE [Concomitant]
  7. LOPERAMIDE [Concomitant]
  8. PAROXETINE HCL [Concomitant]
  9. RAMIPRIL [Concomitant]

REACTIONS (2)
  - DRUG INTERACTION [None]
  - INTERNATIONAL NORMALISED RATIO INCREASED [None]
